FAERS Safety Report 8058800-5 (Version None)
Quarter: 2012Q1

REPORT INFORMATION
  Report Type: 
  Country: None (occurrence: None)
  Receive Date: 20120120
  Receipt Date: 20111025
  Transmission Date: 20120608
  Serious: Yes (Other)
  Sender: FDA-Public Use
  Company Number: US-BRISTOL-MYERS SQUIBB COMPANY-16071987

PATIENT
  Age: 53 Year
  Sex: Male

DRUGS (1)
  1. YERVOY [Suspect]
     Indication: METASTATIC MALIGNANT MELANOMA
     Dosage: 225MG.
     Route: 042
     Dates: start: 20110714, end: 20110915

REACTIONS (1)
  - BLOOD THYROID STIMULATING HORMONE DECREASED [None]
